FAERS Safety Report 8795313 (Version 2)
Quarter: 2015Q1

REPORT INFORMATION
  Report Type: Report from Study
  Country: US (occurrence: US)
  Receive Date: 20120918
  Receipt Date: 20150325
  Transmission Date: 20150721
  Serious: Yes (Death)
  Sender: FDA-Public Use
  Company Number: US-ROCHE-1126582

PATIENT
  Age: 70 Year
  Sex: Female
  Weight: 87.62 kg

DRUGS (21)
  1. AVASTIN [Suspect]
     Active Substance: BEVACIZUMAB
     Indication: MALIGNANT RESPIRATORY TRACT NEOPLASM
     Route: 042
     Dates: start: 20080401
  2. AVASTIN [Suspect]
     Active Substance: BEVACIZUMAB
     Route: 042
     Dates: start: 20081106
  3. KYTRIL [Concomitant]
     Active Substance: GRANISETRON HYDROCHLORIDE
     Dosage: RECEIVED THERAPY ON 01/APR/2008, 01/MAY/2008, 28/MAY/2008, 26/JUN/2008, 28/AUG/2008, 18/SEP/2008, 16
     Route: 042
  4. MITOMYCIN. [Concomitant]
     Active Substance: MITOMYCIN
     Dosage: RECEIVED THERAPY ON  01/APR/2008
     Route: 042
  5. AVASTIN [Suspect]
     Active Substance: BEVACIZUMAB
     Route: 042
     Dates: start: 20080528
  6. AVASTIN [Suspect]
     Active Substance: BEVACIZUMAB
     Route: 042
     Dates: start: 20080717
  7. MITOMYCIN. [Concomitant]
     Active Substance: MITOMYCIN
     Dosage: RECEIVED THERAPY ON :01/MAY/2008, 28/MAY/2008, 26/JUN/2008, 28/AUG/2008, 18/SEP/2008, 16/OCT/2008, 0
     Route: 042
  8. TAGAMET [Concomitant]
     Active Substance: CIMETIDINE
     Dosage: RECEIVED THERAPY ON 01/APR/2008, 01/MAY/2008, 28/MAY/2008, 26/JUN/2008, 28/AUG/2008, 18/SEP/2008, 16
     Route: 042
  9. AVASTIN [Suspect]
     Active Substance: BEVACIZUMAB
     Indication: PANCREATIC CARCINOMA
     Route: 042
     Dates: start: 20080417
  10. AVASTIN [Suspect]
     Active Substance: BEVACIZUMAB
     Route: 042
     Dates: start: 20080612
  11. AVASTIN [Suspect]
     Active Substance: BEVACIZUMAB
     Route: 042
     Dates: start: 20080626
  12. AVASTIN [Suspect]
     Active Substance: BEVACIZUMAB
     Route: 042
     Dates: start: 20081016
  13. AVASTIN [Suspect]
     Active Substance: BEVACIZUMAB
     Route: 042
     Dates: start: 20080501
  14. TARCEVA [Concomitant]
     Active Substance: ERLOTINIB HYDROCHLORIDE
     Dosage: RECEIVED THERAPY ON 05/MAR/2008, 01/MAY/2008, 15/MAY/2008, 12/JUN/2008, 26/JUN/2008, 17/JUL/2008, 7/
     Route: 065
  15. AVASTIN [Suspect]
     Active Substance: BEVACIZUMAB
     Route: 042
     Dates: start: 20080515
  16. AVASTIN [Suspect]
     Active Substance: BEVACIZUMAB
     Route: 042
     Dates: start: 20080807
  17. AVASTIN [Suspect]
     Active Substance: BEVACIZUMAB
     Route: 042
     Dates: start: 20080918
  18. XELODA [Concomitant]
     Active Substance: CAPECITABINE
     Dosage: RECEIVED THERAPY ON 01/MAY/2008, 15/MAY/2008, 12/JUN/2008, 26/JUN/2008, 17/JUL/2008, 7/AUG/2008, 28/
     Route: 065
  19. DECADRON [Concomitant]
     Active Substance: DEXAMETHASONE
     Dosage: RECEIVED THERAPY ON 01/APR/2008, 01/MAY/2008, 28/MAY/2008, 26/JUN/2008, 28/AUG/2008, 18/SEP/2008, 16
     Route: 042
  20. AVASTIN [Suspect]
     Active Substance: BEVACIZUMAB
     Route: 042
     Dates: start: 20080828
  21. LEVAQUIN [Concomitant]
     Active Substance: LEVOFLOXACIN
     Dosage: RECEIVED THERAPY ON 28/MAY/2008.
     Route: 048

REACTIONS (2)
  - Death [Fatal]
  - Off label use [Unknown]

NARRATIVE: CASE EVENT DATE: 20090225
